FAERS Safety Report 5547102-4 (Version None)
Quarter: 2007Q4

REPORT INFORMATION
  Report Type: 
  Country: None (occurrence: None)
  Receive Date: 20071211
  Receipt Date: 20070219
  Transmission Date: 20080405
  Serious: No
  Sender: FDA-Public Use
  Company Number: US-AMGEN-KDL211870

PATIENT
  Sex: Female
  Weight: 47.2 kg

DRUGS (3)
  1. ENBREL [Suspect]
     Indication: RHEUMATOID ARTHRITIS
     Route: 058
     Dates: start: 20060701
  2. EXCEDRIN (MIGRAINE) [Concomitant]
  3. PROTONIX [Concomitant]

REACTIONS (1)
  - BONE CALLUS EXCESSIVE [None]
